FAERS Safety Report 5402574-0 (Version None)
Quarter: 2007Q3

REPORT INFORMATION
  Report Type: 
  Country: None (occurrence: None)
  Receive Date: 20070801
  Receipt Date: 20070104
  Transmission Date: 20080115
  Serious: No
  Sender: FDA-Public Use
  Company Number: A0634117A

PATIENT
  Age: 55 Year
  Sex: Female

DRUGS (8)
  1. IMITREX [Suspect]
     Indication: MIGRAINE
     Route: 048
  2. IMITREX [Suspect]
     Route: 045
  3. CLONOPIN [Concomitant]
  4. LEXAPRO [Concomitant]
  5. DOXEPIN HCL [Concomitant]
  6. CALCIUM CHLORIDE [Concomitant]
  7. DAILY VITAMIN [Concomitant]
  8. ESGIC [Concomitant]

REACTIONS (1)
  - DRUG INEFFECTIVE [None]
